FAERS Safety Report 5343141-7 (Version None)
Quarter: 2007Q2

REPORT INFORMATION
  Report Type: 
  Country: None (occurrence: None)
  Receive Date: 20070416
  Receipt Date: 20070221
  Transmission Date: 20071010
  Serious: No
  Sender: FDA-Public Use
  Company Number: 2007SP000577

PATIENT
  Age: 36 Year
  Sex: Female
  Weight: 102.0593 kg

DRUGS (3)
  1. LUNESTA [Suspect]
     Indication: INSOMNIA
     Dosage: 3 MG;UNK;ORAL
     Route: 048
     Dates: start: 20070220
  2. LEVOTHYROXINE SODIUM [Concomitant]
  3. MUSCLE RELAXANTS [Concomitant]

REACTIONS (4)
  - DIZZINESS [None]
  - DYSGEUSIA [None]
  - NAUSEA [None]
  - VOMITING [None]
